FAERS Safety Report 6763866-6 (Version None)
Quarter: 2010Q2

REPORT INFORMATION
  Report Type: 
  Country: None (occurrence: None)
  Receive Date: 20100610
  Receipt Date: 20100603
  Transmission Date: 20101027
  Serious: Yes (Hospitalization)
  Sender: FDA-Public Use
  Company Number: PHHO2010FR01914

PATIENT
  Sex: Female
  Weight: 59 kg

DRUGS (3)
  1. AFINITOR [Suspect]
     Indication: BREAST CANCER
     Dosage: 5 MG
     Route: 048
     Dates: start: 20090717, end: 20100119
  2. HERCEPTIN [Suspect]
     Indication: BREAST CANCER
     Dosage: 116 MG
     Route: 042
     Dates: start: 20100117
  3. TAXOL [Concomitant]
     Indication: BREAST CANCER
     Dosage: 93 MG
     Dates: start: 20100112

REACTIONS (6)
  - BILE DUCT STENOSIS [None]
  - BILE DUCT STENT INSERTION [None]
  - DRUG INEFFECTIVE [None]
  - JAUNDICE [None]
  - MALIGNANT NEOPLASM PROGRESSION [None]
  - PRURITUS [None]
